FAERS Safety Report 8764111 (Version 2)
Quarter: 2012Q4

REPORT INFORMATION
  Report Type: 
  Country: NL (occurrence: NL)
  Receive Date: 20120831
  Receipt Date: 20120928
  Transmission Date: 20130627
  Serious: Yes (Hospitalization)
  Sender: FDA-Public Use
  Company Number: NL-NOVOPROD-358712

PATIENT
  Age: 51 Year
  Sex: Male
  Weight: 115 kg

DRUGS (6)
  1. VICTOZA [Suspect]
     Indication: TYPE 2 DIABETES MELLITUS
     Dosage: 0.6 mg, qd
     Route: 065
     Dates: start: 20120701, end: 20120715
  2. BARNIDIPINE HYDROCHLORIDE [Concomitant]
     Dosage: 20 mg, qd
     Route: 065
     Dates: start: 20100101
  3. ROSUVASTATIN [Concomitant]
     Dosage: 80 mg, qd
     Dates: start: 20100101
  4. EPLERENONE [Concomitant]
     Dosage: 25 mg, qd
     Dates: start: 20100101
  5. CHLORTHALIDONE [Concomitant]
     Dosage: 12.5 mg, UNK
     Dates: start: 20100101
  6. PANTOPRAZOLE [Concomitant]

REACTIONS (1)
  - Panniculitis [Recovering/Resolving]
